FAERS Safety Report 4664297-5 (Version None)
Quarter: 2005Q2

REPORT INFORMATION
  Report Type: 
  Country: None (occurrence: None)
  Receive Date: 20050518
  Receipt Date: 20050322
  Transmission Date: 20051028
  Serious: Yes (Hospitalization)
  Sender: FDA-Public Use
  Company Number: DE-MERCK-0503DEU00218

PATIENT
  Age: 77 Year
  Sex: Female
  Weight: 80 kg

DRUGS (4)
  1. VIOXX [Suspect]
     Indication: ARTHROPATHY
     Route: 048
     Dates: start: 20030716
  2. NEBIVOLOL HYDROCHLORIDE [Concomitant]
     Indication: HYPERTENSION
     Route: 048
     Dates: start: 20030701
  3. HYPERICIN [Concomitant]
     Indication: DEPRESSION
     Route: 048
     Dates: start: 20030701
  4. RISEDRONATE SODIUM [Concomitant]
     Indication: OSTEOPOROSIS
     Route: 048
     Dates: start: 20031019

REACTIONS (6)
  - ARTERIAL DISORDER [None]
  - ARTERIOSCLEROSIS [None]
  - ENCEPHALOPATHY [None]
  - FALL [None]
  - TRANSIENT ISCHAEMIC ATTACK [None]
  - VENTRICULAR HYPERTROPHY [None]
